FAERS Safety Report 10901667 (Version 1)
Quarter: 2015Q1

REPORT INFORMATION
  Report Type: Spontaneous
  Country: CA (occurrence: CA)
  Receive Date: 20150310
  Receipt Date: 20150310
  Transmission Date: 20150721
  Serious: Yes (Other)
  Sender: FDA-Public Use
  Company Number: CA-TEVA-545964ACC

PATIENT
  Age: 56 Year
  Sex: Female
  Weight: 75 kg

DRUGS (7)
  1. D-TABS [Concomitant]
     Active Substance: CHOLECALCIFEROL
     Dosage: UNKNOWN FORM STRENGTH
     Route: 065
  2. NEXIUM - 40MG [Concomitant]
     Dosage: UNKNOWN FORM STRENGTH
     Route: 065
  3. METOPROLOL [Suspect]
     Active Substance: METOPROLOL
     Indication: ATRIAL FIBRILLATION
     Dosage: 100 MILLIGRAM DAILY;
     Route: 048
  4. COUMADIN [Concomitant]
     Active Substance: WARFARIN SODIUM
     Dosage: UNKNOWN FORM STRENGTH
     Route: 065
  5. CALCIUM CHLORIDE. [Concomitant]
     Active Substance: CALCIUM CHLORIDE
     Dosage: UNKNOWN FORM STRENGTH
     Route: 065
  6. ESTROGEL [Concomitant]
     Active Substance: ESTRADIOL
     Dosage: UNKNOWN FORM STRENGTH
     Route: 065
  7. PROMETRIUM [Concomitant]
     Active Substance: PROGESTERONE
     Dosage: UNKNOWN FORM STRENGTH
     Route: 065

REACTIONS (5)
  - Constipation [Unknown]
  - Decreased appetite [Unknown]
  - Mood swings [Unknown]
  - Sleep disorder [Unknown]
  - Depressed mood [Unknown]
